FAERS Safety Report 24397978 (Version 1)
Quarter: 2024Q4

REPORT INFORMATION
  Report Type: Spontaneous
  Country: DE (occurrence: DE)
  Receive Date: 20241004
  Receipt Date: 20241004
  Transmission Date: 20250114
  Serious: Yes (Other)
  Sender: BAXTER
  Company Number: DE-MLMSERVICE-20240919-PI198460-00128-1

PATIENT
  Age: 20 Year
  Sex: Female
  Weight: 34 kg

DRUGS (11)
  1. DOXORUBICIN [Suspect]
     Active Substance: DOXORUBICIN
     Indication: Ewing^s sarcoma recurrent
     Dosage: FOUR CYCLES OF CHEMOTHERAPY WITH VDC/IE ACCORDING TO EE2012 PROTOCOL WITH RESTAGING
     Route: 065
  2. DOXORUBICIN [Suspect]
     Active Substance: DOXORUBICIN
     Dosage: 2 CYCLES OF VDC/IE
     Route: 065
  3. IFOSFAMIDE [Suspect]
     Active Substance: IFOSFAMIDE
     Indication: Ewing^s sarcoma recurrent
     Dosage: FOUR CYCLES OF CHEMOTHERAPY WITH VDC/IE ACCORDING TO EE2012 PROTOCOL WITH RESTAGING
     Route: 065
  4. IFOSFAMIDE [Suspect]
     Active Substance: IFOSFAMIDE
     Dosage: 2 CYCLES OF VDC/IE
     Route: 065
  5. CYCLOPHOSPHAMIDE [Suspect]
     Active Substance: CYCLOPHOSPHAMIDE
     Indication: Ewing^s sarcoma recurrent
     Dosage: FOUR CYCLES OF CHEMOTHERAPY WITH VDC/IE ACCORDING TO EE2012 PROTOCOL WITH RESTAGING
     Route: 065
  6. CYCLOPHOSPHAMIDE [Suspect]
     Active Substance: CYCLOPHOSPHAMIDE
     Dosage: 2 CYCLES OF VDC/IE
     Route: 065
  7. VINCRISTINE [Suspect]
     Active Substance: VINCRISTINE
     Indication: Ewing^s sarcoma recurrent
     Dosage: FOUR CYCLES OF CHEMOTHERAPY WITH VDC/IE ACCORDING TO EE2012 PROTOCOL WITH RESTAGING
     Route: 065
  8. VINCRISTINE [Suspect]
     Active Substance: VINCRISTINE
     Dosage: 2 CYCLES OF VDC/IE
     Route: 065
  9. ETOPOSIDE [Suspect]
     Active Substance: ETOPOSIDE
     Indication: Ewing^s sarcoma recurrent
     Dosage: FOUR CYCLES OF CHEMOTHERAPY WITH VDC/IE ACCORDING TO EE2012 PROTOCOL WITH RESTAGING
     Route: 065
  10. ETOPOSIDE [Suspect]
     Active Substance: ETOPOSIDE
     Dosage: 2 CYCLES OF VDC/IE
     Route: 065
  11. GRANULOCYTE COLONY-STIMULATING FACTOR NOS [Concomitant]
     Active Substance: GRANULOCYTE COLONY-STIMULATING FACTOR NOS
     Route: 065

REACTIONS (4)
  - Tumour haemorrhage [Unknown]
  - Epilepsy [Unknown]
  - Pancytopenia [Unknown]
  - Headache [Unknown]
